FAERS Safety Report 5736926-6 (Version None)
Quarter: 2008Q2

REPORT INFORMATION
  Report Type: 
  Country: None (occurrence: None)
  Receive Date: 20080509
  Receipt Date: 20080424
  Transmission Date: 20081010
  Serious: Yes (Hospitalization)
  Sender: FDA-Public Use
  Company Number: GXKR2008ES04095

PATIENT
  Sex: Male
  Weight: 4 kg

DRUGS (1)
  1. ACETYLSALICYLIC ACID SRT [Suspect]
     Dosage: TRANSPLACENTAL
     Route: 064

REACTIONS (10)
  - CAESAREAN SECTION [None]
  - DUCTUS ARTERIOSUS PREMATURE CLOSURE [None]
  - FOETAL HEART RATE ABNORMAL [None]
  - MATERNAL DRUGS AFFECTING FOETUS [None]
  - NEONATAL HYPOXIA [None]
  - PULMONARY HYPERTENSION [None]
  - RESPIRATORY DISORDER NEONATAL [None]
  - RIGHT VENTRICULAR HYPERTROPHY [None]
  - TRICUSPID VALVE INCOMPETENCE [None]
  - VENTRICULAR SEPTAL DEFECT [None]
